FAERS Safety Report 13703878 (Version 1)
Quarter: 2017Q2

REPORT INFORMATION
  Report Type: Report from Study
  Country: None (occurrence: TR)
  Receive Date: 20170629
  Receipt Date: 20170629
  Transmission Date: 20170830
  Serious: Yes (Other)
  Sender: FDA-Public Use
  Company Number: TR-ABBVIE-17P-161-2019303-00

PATIENT

DRUGS (2)
  1. VIEKIRAX [Suspect]
     Active Substance: OMBITASVIR\PARITAPREVIR\RITONAVIR
     Indication: HEPATITIS C
     Dosage: NOT AVAILABLE
     Route: 065
  2. EXVIERA [Suspect]
     Active Substance: DASABUVIR
     Indication: HEPATITIS C
     Dosage: NOT AVAILABLE
     Route: 065

REACTIONS (2)
  - Rash [Recovered/Resolved]
  - Renal failure [Recovered/Resolved]
